FAERS Safety Report 9846772 (Version 1)
Quarter: 2014Q1

REPORT INFORMATION
  Report Type: Spontaneous
  Country: NO (occurrence: NO)
  Receive Date: 20140127
  Receipt Date: 20140127
  Transmission Date: 20141002
  Serious: Yes (Life-Threatening, Hospitalization, Disabling)
  Sender: FDA-Public Use
  Company Number: NO-ASTRAZENECA-2014SE05428

PATIENT
  Age: 69 Year
  Sex: Male
  Weight: 81 kg

DRUGS (16)
  1. BRILIQUE [Suspect]
     Indication: ACUTE MYOCARDIAL INFARCTION
     Dosage: DOUBLE LOADING DOSE (90 MG X 4) GIVEN BY MISTAKE.
     Route: 048
     Dates: start: 20131225, end: 20131225
  2. ACETYLSALICYLIC ACID [Suspect]
     Indication: ACUTE MYOCARDIAL INFARCTION
     Route: 048
     Dates: start: 20131225, end: 20131225
  3. ACETYLSALICYLIC ACID [Suspect]
     Indication: ACUTE MYOCARDIAL INFARCTION
     Route: 048
     Dates: start: 20131225, end: 20131225
  4. KLEXANE [Suspect]
     Indication: ACUTE MYOCARDIAL INFARCTION
     Route: 042
     Dates: start: 20131225, end: 20131225
  5. KLEXANE [Suspect]
     Indication: ACUTE MYOCARDIAL INFARCTION
     Route: 058
     Dates: start: 20131225, end: 20131225
  6. METALYSE [Suspect]
     Indication: ACUTE MYOCARDIAL INFARCTION
     Dosage: STANDARD DOSE REDUCED FROM 9000 TO 8000 IU BECAUSE OF THE LARGE DOSE OF BRILIQUE THAT WAS GIVEN.
     Route: 040
     Dates: start: 20131225, end: 20131225
  7. SYMBICORT FORTE TURBUHALER [Concomitant]
     Indication: CHRONIC OBSTRUCTIVE PULMONARY DISEASE
     Dosage: 1 DF TWO TIMES A DAY
     Route: 055
  8. SELOZOK [Concomitant]
     Indication: ACUTE MYOCARDIAL INFARCTION
     Route: 048
     Dates: start: 20131225
  9. SELOKEN [Concomitant]
     Indication: ACUTE MYOCARDIAL INFARCTION
     Route: 048
     Dates: start: 20131225, end: 20131225
  10. SELOKEN [Concomitant]
     Indication: ACUTE MYOCARDIAL INFARCTION
     Route: 042
     Dates: start: 20131225, end: 20131225
  11. MORPHINE [Concomitant]
     Indication: ACUTE MYOCARDIAL INFARCTION
     Dosage: 2,5 MG X 4
     Route: 040
     Dates: start: 20131225
  12. GLYCERYL TRINITRATE [Concomitant]
     Indication: ACUTE MYOCARDIAL INFARCTION
     Route: 041
     Dates: start: 20131225, end: 20131225
  13. DUODART [Concomitant]
     Indication: BENIGN PROSTATIC HYPERPLASIA
     Route: 048
  14. AFIPRAN [Concomitant]
     Indication: ACUTE MYOCARDIAL INFARCTION
     Dates: start: 20131225
  15. SIMVASTATIN [Concomitant]
     Route: 048
  16. SPIRIVA [Concomitant]
     Indication: CHRONIC OBSTRUCTIVE PULMONARY DISEASE
     Route: 055

REACTIONS (3)
  - Monoplegia [Unknown]
  - Cerebral haemorrhage [Recovered/Resolved with Sequelae]
  - Extra dose administered [Unknown]
